FAERS Safety Report 23700470 (Version 2)
Quarter: 2025Q1

REPORT INFORMATION
  Report Type: Spontaneous
  Country: US (occurrence: US)
  Receive Date: 20240403
  Receipt Date: 20250305
  Transmission Date: 20250408
  Serious: Yes (Other)
  Sender: RANBAXY
  Company Number: US-SUN PHARMACEUTICAL INDUSTRIES LTD-2024R1-435022

PATIENT
  Age: 68 Year
  Sex: Male

DRUGS (5)
  1. LURASIDONE [Suspect]
     Active Substance: LURASIDONE
     Indication: Paranoia
     Dosage: 40 MILLIGRAM, DAILY
     Route: 065
  2. OLANZAPINE [Concomitant]
     Active Substance: OLANZAPINE
     Indication: Paranoia
     Dosage: 15 MILLIGRAM, DAILY
     Route: 065
  3. TRAZODONE [Concomitant]
     Active Substance: TRAZODONE HYDROCHLORIDE
     Indication: Paranoia
     Dosage: 100 MILLIGRAM, DAILY
  4. MIRTAZAPINE [Concomitant]
     Active Substance: MIRTAZAPINE
     Indication: Paranoia
     Dosage: 15 MILLIGRAM, DAILY
     Route: 065
  5. MELATONIN [Concomitant]
     Active Substance: MELATONIN
     Indication: Paranoia
     Dosage: 3 MILLIGRAM, DAILY
     Route: 065

REACTIONS (1)
  - Tardive dyskinesia [Unknown]
